FAERS Safety Report 16592444 (Version 2)
Quarter: 2019Q3

REPORT INFORMATION
  Report Type: Spontaneous
  Country: US (occurrence: US)
  Receive Date: 20190718
  Receipt Date: 20190729
  Transmission Date: 20191004
  Serious: Yes (Other)
  Sender: FDA-Public Use
  Company Number: US-NOVOPROD-662831

PATIENT
  Age: 73 Year
  Sex: Female

DRUGS (1)
  1. FIASP [Suspect]
     Active Substance: INSULIN ASPART
     Indication: PRODUCT USED FOR UNKNOWN INDICATION
     Dosage: UNK
     Route: 058

REACTIONS (6)
  - Pruritus [Unknown]
  - Eye irritation [Unknown]
  - Abdominal distension [Unknown]
  - Eye pruritus [Unknown]
  - Cataract [Unknown]
  - Dry skin [Unknown]
